FAERS Safety Report 8845097 (Version 3)
Quarter: 2012Q4

REPORT INFORMATION
  Report Type: 
  Country: US (occurrence: US)
  Receive Date: 20121017
  Receipt Date: 20121210
  Transmission Date: 20130627
  Serious: Yes (Death, Hospitalization)
  Sender: FDA-Public Use
  Company Number: US-ASTELLAS-2012US010199

PATIENT
  Age: 71 None
  Sex: Female

DRUGS (4)
  1. PROGRAF [Suspect]
     Indication: MYASTHENIA GRAVIS
     Dosage: 4 mg, bid
     Route: 048
     Dates: start: 20020507, end: 20121001
  2. MESTINON [Concomitant]
     Indication: ASTHENIA
     Dosage: 60 mg, one or two Q4h prn
     Route: 065
  3. MESTINON [Concomitant]
     Indication: SPEECH DISORDER
  4. MESTINON [Concomitant]
     Indication: DYSPHAGIA

REACTIONS (5)
  - Off label use [Unknown]
  - Pulmonary embolism [Fatal]
  - Dysphagia [Unknown]
  - Asthenia [Unknown]
  - Dysarthria [Unknown]
